FAERS Safety Report 4942214-8 (Version None)
Quarter: 2006Q1

REPORT INFORMATION
  Report Type: 
  Country: None (occurrence: None)
  Receive Date: 20060313
  Receipt Date: 20050913
  Transmission Date: 20060701
  Serious: No
  Sender: FDA-Public Use
  Company Number: US-GLAXOSMITHKLINE-A0574030A

PATIENT

DRUGS (1)
  1. NICORETTE (ORANGE) [Suspect]
     Indication: ILL-DEFINED DISORDER

REACTIONS (3)
  - BLOOD PRESSURE INCREASED [None]
  - EUPHORIC MOOD [None]
  - INTENTIONAL DRUG MISUSE [None]
